FAERS Safety Report 21200324 (Version 1)
Quarter: 2022Q3

REPORT INFORMATION
  Report Type: Spontaneous
  Country: US (occurrence: None)
  Receive Date: 20220810
  Receipt Date: 20220810
  Transmission Date: 20221027
  Serious: No
  Sender: FDA-Public Use
  Company Number: None

PATIENT
  Age: 63 Year
  Sex: Female

DRUGS (1)
  1. HUMIRA [Suspect]
     Active Substance: ADALIMUMAB
     Indication: Rheumatoid arthritis
     Dosage: FREQUENCY : EVERY OTHER WEEK;?
     Route: 058
     Dates: start: 201712

REACTIONS (7)
  - Oropharyngeal pain [None]
  - Eating disorder [None]
  - Sleep disorder [None]
  - Tonsillitis bacterial [None]
  - Arthralgia [None]
  - Arthralgia [None]
  - Anxiety [None]
